FAERS Safety Report 22167120 (Version 2)
Quarter: 2023Q2

REPORT INFORMATION
  Report Type: Spontaneous
  Country: AR (occurrence: AR)
  Receive Date: 20230403
  Receipt Date: 20230503
  Transmission Date: 20230721
  Serious: Yes (Disabling, Other)
  Sender: FDA-Public Use
  Company Number: AR-PFIZER INC-PV202300059760

PATIENT
  Age: 78 Year
  Sex: Female

DRUGS (1)
  1. XELJANZ XR [Suspect]
     Active Substance: TOFACITINIB CITRATE
     Indication: Rheumatoid arthritis
     Dosage: 11 MG, 1X/DAY
     Dates: start: 20190423

REACTIONS (3)
  - Rheumatoid arthritis [Not Recovered/Not Resolved]
  - Gait inability [Not Recovered/Not Resolved]
  - Hypokinesia [Unknown]
